FAERS Safety Report 8506229 (Version 3)
Quarter: 2013Q2

REPORT INFORMATION
  Report Type: Spontaneous
  Country: US (occurrence: US)
  Receive Date: 20120412
  Receipt Date: 20130412
  Transmission Date: 20140414
  Serious: Yes (Life-Threatening, Hospitalization, Other)
  Sender: FDA-Public Use
  Company Number: US-ASTRAZENECA-2012SE22236

PATIENT
  Age: 53 Year
  Sex: Male

DRUGS (2)
  1. NEXIUM [Suspect]
     Route: 048
  2. OMEPRAZOLE [Suspect]
     Route: 048

REACTIONS (7)
  - Erosive oesophagitis [Unknown]
  - Oesophageal haemorrhage [Unknown]
  - Cardiac arrest [Recovered/Resolved]
  - Myocardial infarction [Unknown]
  - Atrioventricular block second degree [Unknown]
  - Haemorrhagic anaemia [Unknown]
  - Drug dose omission [Unknown]
